FAERS Safety Report 8283508-0 (Version None)
Quarter: 2012Q1

REPORT INFORMATION
  Report Type: 
  Country: None (occurrence: None)
  Receive Date: 20120316
  Receipt Date: 20100212
  Transmission Date: 20120608
  Serious: Yes (Other)
  Sender: FDA-Public Use
  Company Number: PHEH2010US02384

PATIENT
  Sex: Female

DRUGS (8)
  1. TEKTURNA [Suspect]
     Dosage: 150 MG
  2. CLARITIN [Concomitant]
  3. IBUPROFEN (ADVIL) [Concomitant]
  4. MULTIVIT (VITAMINS NOS) [Concomitant]
  5. SYNTHROID [Concomitant]
  6. PREMARIN [Concomitant]
  7. VALTREX [Concomitant]
  8. AMBIEN [Concomitant]

REACTIONS (5)
  - EYE IRRITATION [None]
  - EYE INFLAMMATION [None]
  - SWELLING FACE [None]
  - MALAISE [None]
  - THROAT IRRITATION [None]
